FAERS Safety Report 5491648-4 (Version None)
Quarter: 2007Q4

REPORT INFORMATION
  Report Type: 
  Country: None (occurrence: None)
  Receive Date: 20071018
  Receipt Date: 20071018
  Transmission Date: 20080405
  Serious: Yes (Life-Threatening)
  Sender: FDA-Public Use
  Company Number: None

PATIENT
  Sex: Female
  Weight: 40 kg

DRUGS (3)
  1. MELPHALAN [Suspect]
     Indication: HODGKIN'S DISEASE
     Dosage: 91MG TIMES ONE IV
     Route: 042
     Dates: start: 20070921, end: 20070921
  2. FLUDARABINE PHOSPHATE [Suspect]
     Dosage: 39MG DAILY TIMES FIVE IV
     Route: 042
     Dates: start: 20070917, end: 20070921
  3. ATGAM [Concomitant]

REACTIONS (5)
  - FLUID OVERLOAD [None]
  - INFLAMMATION [None]
  - PULMONARY OEDEMA [None]
  - RESPIRATORY DISTRESS [None]
  - STEM CELL TRANSPLANT [None]
